FAERS Safety Report 12235756 (Version 3)
Quarter: 2016Q3

REPORT INFORMATION
  Report Type: Report from Study
  Country: BR (occurrence: BR)
  Receive Date: 20160404
  Receipt Date: 20160729
  Transmission Date: 20161109
  Serious: Yes (Other)
  Sender: FDA-Public Use
  Company Number: BR-ABBVIE-16P-020-1597512-00

PATIENT
  Age: 31 Year
  Sex: Male
  Weight: 80 kg

DRUGS (1)
  1. DEPAKOTE ER [Suspect]
     Active Substance: DIVALPROEX SODIUM
     Indication: BIPOLAR DISORDER
     Dosage: DAILY DOSE: 1000 MILLIGRAM; AT NIGHT.
     Route: 048
     Dates: start: 2014

REACTIONS (2)
  - Ligament sprain [Recovered/Resolved]
  - Ligament rupture [Recovered/Resolved]

NARRATIVE: CASE EVENT DATE: 201506
